FAERS Safety Report 22609854 (Version 2)
Quarter: 2024Q3

REPORT INFORMATION
  Report Type: Spontaneous
  Country: GB (occurrence: GB)
  Receive Date: 20230616
  Receipt Date: 20240703
  Transmission Date: 20241017
  Serious: Yes (Other)
  Sender: RANBAXY
  Company Number: GB-MHRA-MIDB-c9f4e0d3-af77-48f5-9ee1-51814ad72ccb

PATIENT
  Sex: Male

DRUGS (1)
  1. MORPHINE [Suspect]
     Active Substance: MORPHINE
     Indication: Product used for unknown indication
     Dosage: UNK
     Route: 065

REACTIONS (1)
  - Hallucination [Recovering/Resolving]
